FAERS Safety Report 17108287 (Version 1)
Quarter: 2019Q4

REPORT INFORMATION
  Report Type: Spontaneous
  Country: SE (occurrence: SE)
  Receive Date: 20191203
  Receipt Date: 20191203
  Transmission Date: 20200122
  Serious: Yes (Hospitalization)
  Sender: FDA-Public Use
  Company Number: SE-PURDUE-GBR-2019-0073178

PATIENT
  Age: 85 Year
  Sex: Female

DRUGS (27)
  1. METOPROLOL. [Concomitant]
     Active Substance: METOPROLOL
  2. CIPROFLOXACIN. [Concomitant]
     Active Substance: CIPROFLOXACIN
  3. PULMICORT TURBUHALER [Concomitant]
     Active Substance: BUDESONIDE
     Dosage: UNK (200 MCG/ DOSE)
  4. OXYCONTIN [Suspect]
     Active Substance: OXYCODONE HYDROCHLORIDE
     Indication: PAIN
     Dosage: 10 MG, DAILY
     Route: 048
  5. PEVARYL                            /00418501/ [Concomitant]
     Active Substance: ECONAZOLE NITRATE
     Dosage: UNK (STRENGTH 1%)
  6. ZOLPIDEM [Concomitant]
     Active Substance: ZOLPIDEM TARTRATE
  7. OXASCAND [Concomitant]
     Active Substance: OXAZEPAM
  8. ALVEDON [Concomitant]
     Active Substance: ACETAMINOPHEN
     Dosage: UNK
  9. OMEPRAZOL SANDOZ                   /00661201/ [Concomitant]
  10. PROPYLESS [Concomitant]
     Dosage: UNK (STRENGTH 200MG/G)
  11. PRIMPERAN [Concomitant]
     Active Substance: METOCLOPRAMIDE HYDROCHLORIDE
  12. XERODENT                           /01274201/ [Concomitant]
     Dosage: UNK (STRENGTH 28,6 MG/0,25 MG)
  13. MIRTAZAPIN HEXAL [Concomitant]
     Active Substance: MIRTAZAPINE
  14. VENTOLINE                          /00139501/ [Concomitant]
     Active Substance: ALBUTEROL
     Dosage: UNK (STRENGTH 0.2MG/ DOSE)
  15. APIXABAN [Concomitant]
     Active Substance: APIXABAN
  16. FURIX [Concomitant]
     Dosage: UNK
  17. KALCIPOS-D [Concomitant]
     Active Substance: CALCIUM CARBONATE\CHOLECALCIFEROL
     Dosage: UNK (STRENGTH 500 MG/800 IE)
  18. FURIX [Concomitant]
     Dosage: UNK
  19. CILAXORAL [Concomitant]
     Active Substance: SODIUM PICOSULFATE
     Dosage: UNK
  20. KALEORID [Concomitant]
     Active Substance: POTASSIUM CHLORIDE
  21. DERMOVAT                           /00337102/ [Concomitant]
  22. FURIX [Concomitant]
  23. BETOLVEX                           /00056201/ [Concomitant]
     Active Substance: CYANOCOBALAMIN
  24. PREDNISOLON                        /00016201/ [Concomitant]
     Active Substance: PREDNISOLONE
  25. VISCOTEARS [Concomitant]
     Active Substance: CARBOMER
     Dosage: UNK (STRENGTH 2 MG/G)
  26. FLUDENT [Concomitant]
     Active Substance: SODIUM FLUORIDE
  27. LACTULOSE. [Concomitant]
     Active Substance: LACTULOSE

REACTIONS (1)
  - Aphasia [Not Recovered/Not Resolved]

NARRATIVE: CASE EVENT DATE: 20190912
